FAERS Safety Report 25244889 (Version 2)
Quarter: 2025Q2

REPORT INFORMATION
  Report Type: Spontaneous
  Country: JP (occurrence: JP)
  Receive Date: 20250428
  Receipt Date: 20250430
  Transmission Date: 20250716
  Serious: Yes (Other)
  Sender: PFIZER
  Company Number: JP-MLMSERVICE-20250418-PI482719-00270-2

PATIENT
  Age: 20 Year
  Sex: Male

DRUGS (2)
  1. METHYLPREDNISOLONE SODIUM SUCCINATE [Suspect]
     Active Substance: METHYLPREDNISOLONE SODIUM SUCCINATE
     Indication: Posterior reversible encephalopathy syndrome
     Dosage: 500 MG, 1X/DAY (PULSE THERAPY (METHYLPREDNISOLONE 500 MG FOR 3 DAYS)
  2. MYCOPHENOLATE MOFETIL [Concomitant]
     Active Substance: MYCOPHENOLATE MOFETIL
     Indication: Immunosuppressant drug therapy

REACTIONS (3)
  - Duodenal ulcer haemorrhage [Recovered/Resolved]
  - Anaemia [Recovered/Resolved]
  - Off label use [Unknown]
